FAERS Safety Report 19048652 (Version 2)
Quarter: 2021Q3

REPORT INFORMATION
  Report Type: Spontaneous
  Country: US (occurrence: US)
  Receive Date: 20210323
  Receipt Date: 20210728
  Transmission Date: 20211014
  Serious: Yes (Death)
  Sender: FDA-Public Use
  Company Number: US-ELI_LILLY_AND_COMPANY-US202103010481

PATIENT
  Sex: Female

DRUGS (3)
  1. TALTZ [Suspect]
     Active Substance: IXEKIZUMAB
     Indication: PSORIASIS
     Dosage: UNK, OTHER EVERY FOUR WEEK
     Route: 065
     Dates: start: 202001
  2. AMLODIPINE [Concomitant]
     Active Substance: AMLODIPINE BESYLATE
     Indication: HYPERTENSION
  3. TALTZ [Suspect]
     Active Substance: IXEKIZUMAB
     Dosage: UNK, OTHER EVERY FOUR WEEK
     Route: 065
     Dates: start: 202001

REACTIONS (1)
  - Death [Fatal]
